FAERS Safety Report 15409093 (Version 4)
Quarter: 2019Q1

REPORT INFORMATION
  Report Type: Report from Study
  Country: GB (occurrence: GB)
  Receive Date: 20180920
  Receipt Date: 20190206
  Transmission Date: 20190417
  Serious: Yes (Death, Hospitalization, Other)
  Sender: FDA-Public Use
  Company Number: GB-PFIZER INC-2017513728

PATIENT
  Sex: Male

DRUGS (6)
  1. PIRFENIDONE. [Suspect]
     Active Substance: PIRFENIDONE
     Dosage: FULL DOSE
     Route: 048
  2. PIRFENIDONE. [Suspect]
     Active Substance: PIRFENIDONE
     Dosage: 801 MG, DAILY
     Route: 048
     Dates: start: 20130903
  3. PIRFENIDONE. [Suspect]
     Active Substance: PIRFENIDONE
     Dosage: 2403 MG, UNK
     Route: 048
     Dates: start: 20130211
  4. PIRFENIDONE. [Suspect]
     Active Substance: PIRFENIDONE
     Dosage: 2403 MG, UNK
     Route: 048
     Dates: start: 20130903
  5. AZITHROMYCIN ANHYDROUS. [Suspect]
     Active Substance: AZITHROMYCIN ANHYDROUS
     Indication: OSTEOMYELITIS
     Dosage: UNK
  6. PIRFENIDONE. [Suspect]
     Active Substance: PIRFENIDONE
     Indication: IDIOPATHIC PULMONARY FIBROSIS
     Dosage: 801 MG, DAILY
     Route: 048
     Dates: start: 20130211

REACTIONS (73)
  - Lower respiratory tract infection [Unknown]
  - General physical health deterioration [Unknown]
  - Asthenia [Unknown]
  - Cough [Unknown]
  - Upper-airway cough syndrome [Unknown]
  - Lethargy [Unknown]
  - Pulmonary oedema [Unknown]
  - Lower respiratory tract infection [Not Recovered/Not Resolved]
  - Breast pain [Unknown]
  - Swelling [Unknown]
  - Flushing [Unknown]
  - Jaw cyst [Not Recovered/Not Resolved]
  - Death [Fatal]
  - Lung infection [Unknown]
  - Chest pain [Recovering/Resolving]
  - Gastrooesophageal reflux disease [Unknown]
  - Total lung capacity decreased [Unknown]
  - Gastrooesophageal reflux disease [Not Recovered/Not Resolved]
  - Musculoskeletal stiffness [Unknown]
  - Chest pain [Unknown]
  - Gastrointestinal disorder [Unknown]
  - Tremor [Unknown]
  - Depression [Unknown]
  - Gastrointestinal pain [Unknown]
  - Productive cough [Unknown]
  - Hypotension [Unknown]
  - Pruritus [Recovered/Resolved]
  - Hiatus hernia [Unknown]
  - Fatigue [Unknown]
  - Drug effect decreased [Unknown]
  - Nasopharyngitis [Not Recovered/Not Resolved]
  - Abdominal discomfort [Unknown]
  - Drug ineffective [Unknown]
  - Increased upper airway secretion [Unknown]
  - Haemoptysis [Unknown]
  - Osteomyelitis [Unknown]
  - Insomnia [Not Recovered/Not Resolved]
  - Erythema [Unknown]
  - Abdominal pain upper [Not Recovered/Not Resolved]
  - Inguinal hernia [Unknown]
  - Dyspnoea [Unknown]
  - Pulmonary function test decreased [Unknown]
  - Depressed mood [Unknown]
  - Pneumonia [Unknown]
  - Oxygen saturation decreased [Unknown]
  - Cataract [Unknown]
  - Seasonal allergy [Unknown]
  - Condition aggravated [Unknown]
  - Vertigo [Recovered/Resolved]
  - Tooth injury [Unknown]
  - Frequent bowel movements [Not Recovered/Not Resolved]
  - Viral infection [Unknown]
  - Osteomyelitis [Not Recovered/Not Resolved]
  - Weight decreased [Unknown]
  - Pruritus [Unknown]
  - Pulmonary pain [Unknown]
  - Dyspnoea [Not Recovered/Not Resolved]
  - Seborrhoea [Unknown]
  - Rash [Unknown]
  - Tinnitus [Recovered/Resolved]
  - Ulcer [Unknown]
  - Panic attack [Unknown]
  - Musculoskeletal stiffness [Unknown]
  - Alopecia [Recovered/Resolved]
  - Skin irritation [Unknown]
  - Tearfulness [Unknown]
  - Headache [Unknown]
  - Sunburn [Unknown]
  - Malaise [Unknown]
  - Heart rate increased [Unknown]
  - Anxiety [Unknown]
  - Cellulitis [Unknown]
  - Skin ulcer [Unknown]

NARRATIVE: CASE EVENT DATE: 201501
